FAERS Safety Report 24267854 (Version 1)
Quarter: 2024Q3

REPORT INFORMATION
  Report Type: Spontaneous
  Country: CN (occurrence: CN)
  Receive Date: 20240830
  Receipt Date: 20240830
  Transmission Date: 20241017
  Serious: Yes (Other)
  Sender: ACCORD
  Company Number: None

PATIENT
  Age: 37 Year
  Sex: Female
  Weight: 61 kg

DRUGS (4)
  1. TRASTUZUMAB [Suspect]
     Active Substance: TRASTUZUMAB
     Indication: Breast cancer
     Dosage: 150 MILLIGRAM, IMMEDIATELY (ST)?IV DRIP
     Dates: start: 20240715, end: 20240715
  2. CARBOPLATIN [Suspect]
     Active Substance: CARBOPLATIN
     Indication: Breast cancer
     Dosage: 0.5 GRAM, QD?IV DRIP
     Dates: start: 20240715, end: 20240715
  3. ALBUMIN HUMAN [Suspect]
     Active Substance: ALBUMIN HUMAN
     Indication: Breast cancer
     Dosage: 0.2 GRAM, QD?IV DRIP
     Dates: start: 20240715, end: 20240715
  4. HERCEPTIN [Suspect]
     Active Substance: TRASTUZUMAB
     Indication: Breast cancer
     Dosage: 360 MILLIGRAM, ST?IV DRIP
     Dates: start: 20240715, end: 20240715

REACTIONS (1)
  - Myelosuppression [Unknown]

NARRATIVE: CASE EVENT DATE: 20240719
